FAERS Safety Report 9326236 (Version 1)
Quarter: 2013Q2

REPORT INFORMATION
  Report Type: Spontaneous
  Country: FR (occurrence: FR)
  Receive Date: 20130604
  Receipt Date: 20130604
  Transmission Date: 20140414
  Serious: Yes (Life-Threatening, Hospitalization)
  Sender: FDA-Public Use
  Company Number: FR-ASTRAZENECA-2013SE39802

PATIENT
  Age: 576 Month
  Sex: Female

DRUGS (3)
  1. XEROQUEL [Suspect]
     Route: 048
  2. BENZODIAZEPINES [Suspect]
     Route: 065
  3. UNSPECIFIED MEDICATION [Suspect]
     Route: 065

REACTIONS (1)
  - Suicide attempt [Unknown]
